FAERS Safety Report 16367225 (Version 1)
Quarter: 2019Q2

REPORT INFORMATION
  Report Type: Spontaneous
  Country: US (occurrence: US)
  Receive Date: 20190422
  Receipt Date: 20190422
  Transmission Date: 20190711
  Serious: Yes (Hospitalization)
  Sender: FDA-Public Use
  Company Number: None

PATIENT
  Age: 68 Year
  Sex: Male
  Weight: 116.57 kg

DRUGS (1)
  1. ATORVASTATIN [Suspect]
     Active Substance: ATORVASTATIN
     Indication: HYPERLIPIDAEMIA
     Route: 048
     Dates: start: 20180712, end: 20190114

REACTIONS (9)
  - Pruritus [None]
  - Hepatitis cholestatic [None]
  - Fatigue [None]
  - Jaundice [None]
  - Early satiety [None]
  - Weight decreased [None]
  - Nausea [None]
  - Liver function test abnormal [None]
  - Hepatocellular injury [None]

NARRATIVE: CASE EVENT DATE: 20181110
